FAERS Safety Report 7670566 (Version 5)
Quarter: 2014Q1

REPORT INFORMATION
  Report Type: Spontaneous
  Country: US (occurrence: US)
  Receive Date: 20101116
  Receipt Date: 20140313
  Transmission Date: 20141002
  Serious: Yes (Hospitalization, Other)
  Sender: FDA-Public Use
  Company Number: US-ROCHE-719003

PATIENT
  Age: 21 Year
  Sex: Male
  Weight: 68.1 kg

DRUGS (1)
  1. ACCUTANE [Suspect]
     Indication: ACNE
     Route: 048
     Dates: start: 20011113, end: 20020328

REACTIONS (7)
  - Colitis ulcerative [Unknown]
  - Gastrointestinal injury [Unknown]
  - Emotional distress [Unknown]
  - Intestinal obstruction [Unknown]
  - Inflammatory bowel disease [Unknown]
  - Sacroiliitis [Unknown]
  - Aphthous stomatitis [Unknown]
